FAERS Safety Report 22047897 (Version 3)
Quarter: 2023Q1

REPORT INFORMATION
  Report Type: Spontaneous
  Country: RU (occurrence: RU)
  Receive Date: 20230301
  Receipt Date: 20230324
  Transmission Date: 20230418
  Serious: Yes (Disabling, Other)
  Sender: FDA-Public Use
  Company Number: RU-002147023-NVSC2023RU042994

PATIENT
  Age: 55 Year
  Sex: Female

DRUGS (5)
  1. TAFINLAR [Suspect]
     Active Substance: DABRAFENIB MESYLATE
     Indication: Malignant melanoma
     Dosage: UNK (STANDARD DOSE)
     Route: 065
     Dates: start: 2021, end: 20230220
  2. TAFINLAR [Suspect]
     Active Substance: DABRAFENIB MESYLATE
     Indication: Lymphadenopathy
     Dosage: 150 UNK, BID
     Route: 065
     Dates: start: 202206, end: 20230220
  3. MEKINIST [Suspect]
     Active Substance: TRAMETINIB DIMETHYL SULFOXIDE
     Indication: Malignant melanoma
     Dosage: UNK (STANDARD DOSE)
     Route: 065
     Dates: start: 2021, end: 20230220
  4. MEKINIST [Suspect]
     Active Substance: TRAMETINIB DIMETHYL SULFOXIDE
     Indication: Lymphadenopathy
     Dosage: 2 MG, QD
     Route: 065
     Dates: start: 202206, end: 20230220
  5. ACETAMINOPHEN [Concomitant]
     Active Substance: ACETAMINOPHEN
     Indication: Product used for unknown indication
     Dosage: UNK
     Route: 065

REACTIONS (3)
  - Cataract [Unknown]
  - Uveitis [Unknown]
  - Visual impairment [Unknown]
